FAERS Safety Report 18535796 (Version 1)
Quarter: 2020Q4

REPORT INFORMATION
  Report Type: Report from Study
  Country: CA (occurrence: CA)
  Receive Date: 20201123
  Receipt Date: 20201123
  Transmission Date: 20210114
  Serious: Yes (Other)
  Sender: FDA-Public Use
  Company Number: CA-JNJFOC-20160821402

PATIENT
  Age: 17 Year
  Sex: Female
  Weight: 45.4 kg

DRUGS (1)
  1. REMICADE [Suspect]
     Active Substance: INFLIXIMAB
     Indication: CROHN^S DISEASE
     Dosage: RECEIVED INFUSION ON10/OCT/2013, 13-SEP-2016, 24/OCT/2016
     Route: 042
     Dates: start: 20100527, end: 20161208

REACTIONS (8)
  - Crohn^s disease [Unknown]
  - Drug ineffective [Unknown]
  - Off label use [Unknown]
  - Urinary tract infection [Unknown]
  - Oral candidiasis [Not Recovered/Not Resolved]
  - Product use issue [Unknown]
  - Inappropriate schedule of product administration [Unknown]
  - Fistula [Not Recovered/Not Resolved]

NARRATIVE: CASE EVENT DATE: 20100527
